FAERS Safety Report 14310624 (Version 1)
Quarter: 2017Q4

REPORT INFORMATION
  Report Type: Spontaneous
  Country: US (occurrence: US)
  Receive Date: 20171220
  Receipt Date: 20171220
  Transmission Date: 20180321
  Serious: Yes (Hospitalization, Other)
  Sender: FDA-Public Use
  Company Number: US-VISTAPHARM, INC.-VER201712-001356

PATIENT
  Age: 23 Year
  Sex: Male

DRUGS (2)
  1. VALPROIC ACID. [Suspect]
     Active Substance: VALPROIC ACID
     Indication: PRODUCT USED FOR UNKNOWN INDICATION
  2. VALPROIC ACID. [Suspect]
     Active Substance: VALPROIC ACID

REACTIONS (3)
  - Thrombocytopenia [Recovering/Resolving]
  - Acute respiratory failure [Recovering/Resolving]
  - Pulmonary haemorrhage [Unknown]
